FAERS Safety Report 18062493 (Version 1)
Quarter: 2020Q3

REPORT INFORMATION
  Report Type: Spontaneous
  Country: US (occurrence: US)
  Receive Date: 20200723
  Receipt Date: 20200723
  Transmission Date: 20201103
  Serious: No
  Sender: FDA-Public Use
  Company Number: US-IGSA-SR10008704

PATIENT
  Age: 34 Year
  Sex: Female
  Weight: 76 kg

DRUGS (3)
  1. GAMUNEX?C [Suspect]
     Active Substance: HUMAN IMMUNOGLOBULIN G
     Dosage: 10 G, Q.4WK.
     Route: 042
     Dates: start: 20190627, end: 20190627
  2. GAMUNEX?C [Suspect]
     Active Substance: HUMAN IMMUNOGLOBULIN G
     Dosage: 50 G, Q.4WK.
     Route: 042
  3. GAMUNEX?C [Suspect]
     Active Substance: HUMAN IMMUNOGLOBULIN G
     Indication: IMMUNODEFICIENCY COMMON VARIABLE
     Dosage: 40 G, Q.4WK.
     Route: 042
     Dates: start: 20190627, end: 20190627

REACTIONS (3)
  - Dyspepsia [Recovered/Resolved]
  - Papule [Recovered/Resolved]
  - Ear discomfort [Recovered/Resolved]

NARRATIVE: CASE EVENT DATE: 20190627
